FAERS Safety Report 9772645 (Version 1)
Quarter: 2013Q4

REPORT INFORMATION
  Report Type: Spontaneous
  Country: US (occurrence: None)
  Receive Date: 20131218
  Receipt Date: 20131218
  Transmission Date: 20140711
  Serious: No
  Sender: FDA-Public Use
  Company Number: None

PATIENT
  Age: 22 Year
  Sex: Female
  Weight: 83.64 kg

DRUGS (1)
  1. DACTINOMYCIN [Suspect]

REACTIONS (11)
  - Dizziness [None]
  - Musculoskeletal stiffness [None]
  - Dyspnoea [None]
  - Sinus arrhythmia [None]
  - Electrocardiogram T wave abnormal [None]
  - Hernia [None]
  - Gastrooesophageal reflux disease [None]
  - Blood culture positive [None]
  - Staphylococcus test positive [None]
  - Staphylococcus test positive [None]
  - Psychogenic seizure [None]
